FAERS Safety Report 5063258-4 (Version None)
Quarter: 2006Q3

REPORT INFORMATION
  Report Type: 
  Country: None (occurrence: None)
  Receive Date: 20060724
  Receipt Date: 20060724
  Transmission Date: 20061208
  Serious: No
  Sender: FDA-Public Use
  Company Number: None

PATIENT
  Sex: Female

DRUGS (1)
  1. AMOXICILLIN PEDIATRIC [Suspect]
     Indication: EAR INFECTION
     Dosage: PEDIATRIC DOSE FORM

REACTIONS (1)
  - TOOTH DECALCIFICATION [None]
